FAERS Safety Report 11737352 (Version 1)
Quarter: 2015Q4

REPORT INFORMATION
  Report Type: Spontaneous
  Country: DE (occurrence: DE)
  Receive Date: 20151113
  Receipt Date: 20151113
  Transmission Date: 20160304
  Serious: Yes (Death, Congenital Anomaly)
  Sender: FDA-Public Use
  Company Number: DE-TEVA-608164GER

PATIENT
  Age: 23 Day
  Sex: Male
  Weight: 2.5 kg

DRUGS (1)
  1. CITALOPRAM [Suspect]
     Active Substance: CITALOPRAM HYDROBROMIDE
     Route: 064

REACTIONS (1)
  - Congenital cardiovascular anomaly [Fatal]

NARRATIVE: CASE EVENT DATE: 20151029
